FAERS Safety Report 19818273 (Version 1)
Quarter: 2021Q3

REPORT INFORMATION
  Report Type: Spontaneous
  Country: CA (occurrence: CA)
  Receive Date: 20210911
  Receipt Date: 20210911
  Transmission Date: 20211014
  Serious: Yes (Hospitalization)
  Sender: FDA-Public Use
  Company Number: CA-TEVA-2021-CA-1950572

PATIENT
  Age: 57 Year
  Sex: Female
  Weight: 84 kg

DRUGS (2)
  1. ETOPOSIDE. [Suspect]
     Active Substance: ETOPOSIDE
     Route: 042
  2. CISPLATIN INJECTION, BP SINGLE DOSE VIALS. 10MG/10ML, 50MG/50ML AND 10 [Suspect]
     Active Substance: CISPLATIN
     Route: 042

REACTIONS (3)
  - Chills [Unknown]
  - Pyrexia [Unknown]
  - Neutropenia [Unknown]
